FAERS Safety Report 21809694 (Version 1)
Quarter: 2023Q1

REPORT INFORMATION
  Report Type: Spontaneous
  Country: FR (occurrence: FR)
  Receive Date: 20230103
  Receipt Date: 20230103
  Transmission Date: 20230418
  Serious: Yes (Hospitalization)
  Sender: FDA-Public Use
  Company Number: FR-ALKEM LABORATORIES LIMITED-FR-ALKEM-2022-13182

PATIENT
  Age: 35 Year
  Sex: Female

DRUGS (2)
  1. VENLAFAXINE [Suspect]
     Active Substance: VENLAFAXINE HYDROCHLORIDE
     Indication: Suicide attempt
     Dosage: UNK
     Route: 065
  2. BROMAZEPAM [Suspect]
     Active Substance: BROMAZEPAM
     Indication: Suicide attempt
     Dosage: UNK
     Route: 065

REACTIONS (3)
  - Hypoglycaemia [Recovering/Resolving]
  - Toxicity to various agents [Recovering/Resolving]
  - Overdose [Unknown]
